FAERS Safety Report 13663296 (Version 1)
Quarter: 2017Q2

REPORT INFORMATION
  Report Type: Spontaneous
  Country: US (occurrence: US)
  Receive Date: 20170616
  Receipt Date: 20170616
  Transmission Date: 20170830
  Serious: Yes (Hospitalization)
  Sender: FDA-Public Use
  Company Number: None

PATIENT
  Age: 68 Year
  Sex: Female

DRUGS (22)
  1. PREDNISONE. [Concomitant]
     Active Substance: PREDNISONE
  2. POT CL MICRO [Concomitant]
  3. PACERONE [Concomitant]
     Active Substance: AMIODARONE HYDROCHLORIDE
  4. LISINOPRIL AND HYDROCHLOROTHIAZIDE [Concomitant]
     Active Substance: HYDROCHLOROTHIAZIDE\LISINOPRIL
  5. ALPRAZOLAM. [Concomitant]
     Active Substance: ALPRAZOLAM
  6. BIOTIN [Concomitant]
     Active Substance: BIOTIN
  7. MULTIVITAMIN LIQ [Concomitant]
  8. XARELTO [Concomitant]
     Active Substance: RIVAROXABAN
  9. ENBREL [Suspect]
     Active Substance: ETANERCEPT
     Indication: RHEUMATOID ARTHRITIS
     Route: 058
     Dates: start: 20160502
  10. PAROXETINE. [Concomitant]
     Active Substance: PAROXETINE
  11. NORCO [Concomitant]
     Active Substance: ACETAMINOPHEN\HYDROCODONE BITARTRATE
  12. PANTOPRAZOLE [Concomitant]
     Active Substance: PANTOPRAZOLE
  13. DIGOXIN. [Concomitant]
     Active Substance: DIGOXIN
  14. SALAGEN [Concomitant]
     Active Substance: PILOCARPINE HYDROCHLORIDE
  15. BUMETANIDE. [Concomitant]
     Active Substance: BUMETANIDE
  16. DILTIAZEM. [Concomitant]
     Active Substance: DILTIAZEM
  17. DICYCLOMINE [Concomitant]
     Active Substance: DICYCLOMINE HYDROCHLORIDE
  18. ATORVASTATIN [Concomitant]
     Active Substance: ATORVASTATIN
  19. GLUCOS/CHOND [Concomitant]
  20. CARTIA XT [Concomitant]
     Active Substance: DILTIAZEM HYDROCHLORIDE
  21. OXYBUTNIN POW CHLORIDE [Concomitant]
  22. ALBUTEROL. [Concomitant]
     Active Substance: ALBUTEROL

REACTIONS (3)
  - Colitis ulcerative [None]
  - Drug dose omission [None]
  - Diverticulitis [None]

NARRATIVE: CASE EVENT DATE: 201705
